FAERS Safety Report 6249024-2 (Version None)
Quarter: 2009Q2

REPORT INFORMATION
  Report Type: 
  Country: None (occurrence: None)
  Receive Date: 20090625
  Receipt Date: 20090616
  Transmission Date: 20091009
  Serious: Yes (Other)
  Sender: FDA-Public Use
  Company Number: CHPA2009US13607

PATIENT
  Sex: Female

DRUGS (2)
  1. EXCEDRIN (MIGRAINE) [Suspect]
     Indication: ARTHRITIS
     Dosage: 1-2 DF, PRN, ORAL
     Route: 048
     Dates: start: 19630101, end: 19910101
  2. EXCEDRIN (MIGRAINE) [Suspect]
     Indication: ARTHRITIS
     Dosage: 1-2 DF, PRN, ORAL
     Route: 048
     Dates: start: 20090201

REACTIONS (1)
  - LIP AND/OR ORAL CAVITY CANCER [None]
